FAERS Safety Report 10261304 (Version 1)
Quarter: 2014Q2

REPORT INFORMATION
  Report Type: Spontaneous
  Country: US (occurrence: US)
  Receive Date: 20140626
  Receipt Date: 20140626
  Transmission Date: 20141212
  Serious: Yes (Hospitalization)
  Sender: FDA-Public Use
  Company Number: US-JNJFOC-20140613508

PATIENT
  Age: 76 Year
  Sex: Female

DRUGS (1)
  1. SPORANOX [Suspect]
     Indication: PRODUCT USED FOR UNKNOWN INDICATION
     Route: 048

REACTIONS (6)
  - Hospitalisation [Unknown]
  - Chronic respiratory failure [Unknown]
  - Pneumonia [Unknown]
  - Plasma cell myeloma [Unknown]
  - Urinary tract infection [Unknown]
  - Asthenia [Unknown]
